FAERS Safety Report 14951445 (Version 1)
Quarter: 2018Q2

REPORT INFORMATION
  Report Type: Spontaneous
  Country: BR (occurrence: BR)
  Receive Date: 20180530
  Receipt Date: 20180530
  Transmission Date: 20180711
  Serious: Yes (Other)
  Sender: FDA-Public Use
  Company Number: BR-ELI_LILLY_AND_COMPANY-BR201805009116

PATIENT
  Sex: Male

DRUGS (1)
  1. AXERON [Suspect]
     Active Substance: TESTOSTERONE
     Indication: PRODUCT USED FOR UNKNOWN INDICATION
     Dosage: UNK, UNKNOWN
     Route: 065
     Dates: start: 2016

REACTIONS (8)
  - Hyperhidrosis [Unknown]
  - Dizziness [Unknown]
  - Carbohydrate intolerance [Unknown]
  - Glucose tolerance impaired [Unknown]
  - Pancreatic cyst [Unknown]
  - Pancreatic duct obstruction [Unknown]
  - Somnolence [Not Recovered/Not Resolved]
  - Prostatitis [Unknown]

NARRATIVE: CASE EVENT DATE: 2016
